FAERS Safety Report 14208064 (Version 1)
Quarter: 2017Q4

REPORT INFORMATION
  Report Type: Spontaneous
  Country: US (occurrence: US)
  Receive Date: 20171120
  Receipt Date: 20171120
  Transmission Date: 20180321
  Serious: Yes (Other)
  Sender: FDA-Public Use
  Company Number: None

PATIENT
  Age: 53 Year
  Sex: Female
  Weight: 79.2 kg

DRUGS (1)
  1. GABAPENTIN. [Suspect]
     Active Substance: GABAPENTIN
     Indication: ARTHRITIS
     Dosage: ?          QUANTITY:90 CAPSULE(S);?DAILY ORAL
     Route: 048
     Dates: start: 20171115, end: 20171118

REACTIONS (4)
  - Arthralgia [None]
  - Peripheral swelling [None]
  - Gait disturbance [None]
  - Groin pain [None]

NARRATIVE: CASE EVENT DATE: 20171118
